FAERS Safety Report 20895446 (Version 1)
Quarter: 2022Q2

REPORT INFORMATION
  Report Type: Spontaneous
  Country: US (occurrence: None)
  Receive Date: 20220528
  Receipt Date: 20220528
  Transmission Date: 20220721
  Serious: Yes (Disabling)
  Sender: FDA-Public Use
  Company Number: None

PATIENT
  Age: 29 Year
  Sex: Female
  Weight: 55.35 kg

DRUGS (2)
  1. NEXPLANON [Suspect]
     Active Substance: ETONOGESTREL
     Indication: Contraception
     Dosage: OTHER QUANTITY : 1 INJECTION(S);?OTHER FREQUENCY : 4 YEARS;?
     Route: 030
     Dates: start: 20220221
  2. NEXPLANON [Concomitant]
     Active Substance: ETONOGESTREL

REACTIONS (7)
  - Increased appetite [None]
  - Lethargy [None]
  - Abdominal distension [None]
  - Implant site paraesthesia [None]
  - Implant site hypoaesthesia [None]
  - Apathy [None]
  - Amenorrhoea [None]

NARRATIVE: CASE EVENT DATE: 20220301
